FAERS Safety Report 24439811 (Version 2)
Quarter: 2024Q4

REPORT INFORMATION
  Report Type: Report from Study
  Country: JP (occurrence: JP)
  Receive Date: 20241015
  Receipt Date: 20241106
  Transmission Date: 20250115
  Serious: Yes (Hospitalization, Other)
  Sender: PFIZER
  Company Number: JP-PFIZER INC-PV202300151238

PATIENT
  Age: 8 Month
  Sex: Male
  Weight: 4.66 kg

DRUGS (5)
  1. SIROLIMUS [Suspect]
     Active Substance: SIROLIMUS
     Indication: Lymphangioma
     Dosage: 0.28 MG, 1 D
     Route: 048
     Dates: start: 20220426, end: 20220516
  2. SIROLIMUS [Suspect]
     Active Substance: SIROLIMUS
     Dosage: 0.2 MG, 1 D
     Route: 048
     Dates: start: 20220517, end: 20220520
  3. SIROLIMUS [Suspect]
     Active Substance: SIROLIMUS
     Dosage: 0.2 MG, 1 D
     Route: 048
     Dates: start: 20220606, end: 20220717
  4. SIROLIMUS [Suspect]
     Active Substance: SIROLIMUS
     Dosage: 0.1 MG, 1 D
     Route: 048
     Dates: start: 20220718, end: 20220814
  5. SIROLIMUS [Suspect]
     Active Substance: SIROLIMUS
     Dosage: 0.13 MG, 1 D
     Route: 048
     Dates: start: 20220815

REACTIONS (5)
  - Infection [Recovering/Resolving]
  - Pleural effusion [Recovering/Resolving]
  - Blood zinc decreased [Recovering/Resolving]
  - Infantile vomiting [Recovered/Resolved]
  - Blood iron decreased [Recovered/Resolved]

NARRATIVE: CASE EVENT DATE: 20220426
